FAERS Safety Report 9732846 (Version 3)
Quarter: 2014Q1

REPORT INFORMATION
  Report Type: Report from Study
  Country: CA (occurrence: CA)
  Receive Date: 20131205
  Receipt Date: 20140110
  Transmission Date: 20141002
  Serious: Yes (Other)
  Sender: FDA-Public Use
  Company Number: CA-JNJFOC-20131010748

PATIENT
  Age: 58 Year
  Sex: Male
  Weight: 106.9 kg

DRUGS (3)
  1. REMICADE [Suspect]
     Indication: CROHN^S DISEASE
     Dosage: 52 WEEKS
     Route: 042
     Dates: start: 20080311
  2. REMICADE [Suspect]
     Indication: CROHN^S DISEASE
     Dosage: FOR 52 WEEKS INTRAVENOUS
     Route: 042
     Dates: start: 20060314
  3. IMURAN [Concomitant]
     Route: 048

REACTIONS (3)
  - Nephrolithiasis [Unknown]
  - Infection [Unknown]
  - Urinary tract infection [Unknown]
